FAERS Safety Report 22191844 (Version 4)
Quarter: 2023Q2

REPORT INFORMATION
  Report Type: Spontaneous
  Country: CO (occurrence: CO)
  Receive Date: 20230410
  Receipt Date: 20230523
  Transmission Date: 20230722
  Serious: No
  Sender: FDA-Public Use
  Company Number: CO-PFIZER INC-PV202300058892

PATIENT
  Age: 9 Year
  Sex: Female

DRUGS (1)
  1. GENOTROPIN [Suspect]
     Active Substance: SOMATROPIN
     Dosage: 1.2 MG, DAILY
     Route: 058

REACTIONS (5)
  - Drug dose omission by device [Unknown]
  - Wrong technique in device usage process [Unknown]
  - Device physical property issue [Unknown]
  - Device failure [Unknown]
  - Device issue [Unknown]

NARRATIVE: CASE EVENT DATE: 20230327
